FAERS Safety Report 7657854-5 (Version None)
Quarter: 2011Q3

REPORT INFORMATION
  Report Type: 
  Country: None (occurrence: None)
  Receive Date: 20110805
  Receipt Date: 20110729
  Transmission Date: 20111222
  Serious: No
  Sender: FDA-Public Use
  Company Number: US-BIOGENIDEC-2011BI023263

PATIENT
  Sex: Female

DRUGS (2)
  1. TYSABRI [Suspect]
     Indication: MULTIPLE SCLEROSIS
     Route: 042
     Dates: start: 20100816, end: 20110523
  2. AVONEX [Concomitant]
     Indication: MULTIPLE SCLEROSIS
     Route: 030
     Dates: start: 20091026

REACTIONS (8)
  - TREMOR [None]
  - ARTHRALGIA [None]
  - MUSCLE SPASMS [None]
  - MULTIPLE SCLEROSIS RELAPSE [None]
  - BALANCE DISORDER [None]
  - MYALGIA [None]
  - HYPOTHYROIDISM [None]
  - COGNITIVE DISORDER [None]
